FAERS Safety Report 4266322-2 (Version None)
Quarter: 2004Q1

REPORT INFORMATION
  Report Type: 
  Country: None (occurrence: None)
  Receive Date: 20040106
  Receipt Date: 20031224
  Transmission Date: 20041129
  Serious: Yes (Other)
  Sender: FDA-Public Use
  Company Number: 2003126625

PATIENT
  Age: 47 Year
  Sex: Male

DRUGS (4)
  1. VIAGRA [Suspect]
     Indication: ILL-DEFINED DISORDER
     Dosage: ORAL
     Route: 048
  2. CARBAZOCHROME SODIUM SULFONATE (CARBOZOCHROME SODIUM SULFONATE) [Concomitant]
  3. PANCREAS EXTRACT (PANCREAS EXTRACT) [Concomitant]
  4. INSULIN [Concomitant]

REACTIONS (1)
  - RETINAL VEIN OCCLUSION [None]
